FAERS Safety Report 17710207 (Version 2)
Quarter: 2020Q2

REPORT INFORMATION
  Report Type: Spontaneous
  Country: US (occurrence: US)
  Receive Date: 20200427
  Receipt Date: 20200515
  Transmission Date: 20200714
  Serious: No
  Sender: FDA-Public Use
  Company Number: US-SA-2020SA058490

PATIENT
  Age: 52 Year
  Sex: Female

DRUGS (20)
  1. XARELTO [Concomitant]
     Active Substance: RIVAROXABAN
  2. PHENAZOPYRIDINE. [Concomitant]
     Active Substance: PHENAZOPYRIDINE
  3. PREGABALIN. [Concomitant]
     Active Substance: PREGABALIN
  4. PANTOPRAZOLE [Concomitant]
     Active Substance: PANTOPRAZOLE
  5. VITAMIN D NOS [Concomitant]
     Active Substance: VITAMIN D NOS
  6. DUPIXENT [Suspect]
     Active Substance: DUPILUMAB
     Indication: DERMATITIS ATOPIC
     Dosage: 300 MG, QOW
     Route: 058
     Dates: start: 20191231
  7. DESONIDE. [Concomitant]
     Active Substance: DESONIDE
  8. TRIAMCINOLONE [Concomitant]
     Active Substance: TRIAMCINOLONE
  9. CEFDINIR. [Concomitant]
     Active Substance: CEFDINIR
  10. FUROSEMIDE. [Concomitant]
     Active Substance: FUROSEMIDE
  11. CLOBETASOL [Concomitant]
     Active Substance: CLOBETASOL
  12. FEXOFENADINE [Concomitant]
     Active Substance: FEXOFENADINE HYDROCHLORIDE
  13. PROAIR [FLUTICASONE PROPIONATE] [Concomitant]
     Active Substance: FLUTICASONE PROPIONATE
  14. ASPIRIN 81 [Concomitant]
     Active Substance: ASPIRIN
  15. BENZONATATE. [Concomitant]
     Active Substance: BENZONATATE
  16. FLUCONAZOLE. [Concomitant]
     Active Substance: FLUCONAZOLE
  17. PREDNISONE. [Concomitant]
     Active Substance: PREDNISONE
  18. TACROLIMUS. [Concomitant]
     Active Substance: TACROLIMUS
  19. SYMBICORT [Concomitant]
     Active Substance: BUDESONIDE\FORMOTEROL FUMARATE DIHYDRATE
  20. MONTELUCAST [Concomitant]
     Active Substance: MONTELUKAST SODIUM

REACTIONS (5)
  - Pyrexia [Not Recovered/Not Resolved]
  - Rash pruritic [Not Recovered/Not Resolved]
  - Erythema [Not Recovered/Not Resolved]
  - Injection site bruising [Not Recovered/Not Resolved]
  - Injection site pruritus [Not Recovered/Not Resolved]

NARRATIVE: CASE EVENT DATE: 202001
